FAERS Safety Report 4762395-9 (Version None)
Quarter: 2005Q3

REPORT INFORMATION
  Report Type: 
  Country: None (occurrence: None)
  Receive Date: 20050907
  Receipt Date: 20050830
  Transmission Date: 20060218
  Serious: Yes (Hospitalization)
  Sender: FDA-Public Use
  Company Number: US-KINGPHARMUSA00001-K200501140

PATIENT
  Age: 46 Year
  Sex: Female

DRUGS (1)
  1. SONATA [Suspect]
     Indication: INSOMNIA
     Dosage: 10MG TO 20MG, PRN
     Route: 048
     Dates: end: 20050801

REACTIONS (3)
  - INTENTIONAL MISUSE [None]
  - LOSS OF CONSCIOUSNESS [None]
  - OVERDOSE [None]
